FAERS Safety Report 13923136 (Version 4)
Quarter: 2019Q1

REPORT INFORMATION
  Report Type: Report from Study
  Country: None (occurrence: US)
  Receive Date: 20170831
  Receipt Date: 20190130
  Transmission Date: 20190417
  Serious: Yes (Other)
  Sender: FDA-Public Use
  Company Number: US-ABBVIE-17K-163-2082068-00

PATIENT
  Sex: Female
  Weight: 80.36 kg

DRUGS (5)
  1. ASPIRIN. [Concomitant]
     Active Substance: ASPIRIN
     Indication: PRODUCT USED FOR UNKNOWN INDICATION
  2. HUMIRA [Suspect]
     Active Substance: ADALIMUMAB
     Indication: RHEUMATOID ARTHRITIS
     Route: 058
     Dates: start: 2017, end: 20180801
  3. LANTUS [Concomitant]
     Active Substance: INSULIN GLARGINE
     Indication: DIABETES MELLITUS
  4. HUMIRA [Suspect]
     Active Substance: ADALIMUMAB
     Indication: ANKYLOSING SPONDYLITIS
     Route: 058
     Dates: start: 2018, end: 2018
  5. POTASSIUM CHLORIDE. [Concomitant]
     Active Substance: POTASSIUM CHLORIDE
     Indication: PRODUCT USED FOR UNKNOWN INDICATION

REACTIONS (14)
  - Vein rupture [Unknown]
  - Asthma [Recovering/Resolving]
  - Arthralgia [Unknown]
  - Peripheral swelling [Unknown]
  - Oropharyngeal pain [Recovering/Resolving]
  - Viral rash [Recovered/Resolved]
  - Pain in extremity [Unknown]
  - Contusion [Unknown]
  - Paraesthesia [Unknown]
  - Cataract [Unknown]
  - Joint swelling [Unknown]
  - Thrombosis [Unknown]
  - Nasopharyngitis [Recovering/Resolving]
  - Erythema [Unknown]

NARRATIVE: CASE EVENT DATE: 2017
